FAERS Safety Report 6710322-7 (Version None)
Quarter: 2010Q2

REPORT INFORMATION
  Report Type: 
  Country: None (occurrence: None)
  Receive Date: 20100504
  Receipt Date: 20100420
  Transmission Date: 20101027
  Serious: Yes (Other)
  Sender: FDA-Public Use
  Company Number: PHHY2010MT24718

PATIENT
  Sex: Female

DRUGS (1)
  1. ZOMETA [Suspect]
     Indication: HYPERCALCAEMIA OF MALIGNANCY
     Dosage: 4 MG EVERY 3-4 WEEKS
     Route: 042
     Dates: start: 20100315, end: 20100330

REACTIONS (2)
  - CONVULSION [None]
  - HYPOCALCAEMIA [None]
